FAERS Safety Report 24570682 (Version 1)
Quarter: 2024Q4

REPORT INFORMATION
  Report Type: Spontaneous
  Country: ES (occurrence: ES)
  Receive Date: 20241031
  Receipt Date: 20241031
  Transmission Date: 20250114
  Serious: Yes (Other)
  Sender: MERCK
  Company Number: ES-009507513-2410ESP012803

PATIENT
  Sex: Female

DRUGS (1)
  1. PEMBROLIZUMAB [Suspect]
     Active Substance: PEMBROLIZUMAB
     Indication: Colon cancer

REACTIONS (2)
  - Diabetic ketoacidosis [Unknown]
  - Hepatotoxicity [Unknown]
